FAERS Safety Report 13112676 (Version 3)
Quarter: 2017Q2

REPORT INFORMATION
  Report Type: Spontaneous
  Country: US (occurrence: US)
  Receive Date: 20170113
  Receipt Date: 20170404
  Transmission Date: 20170830
  Serious: Yes (Death, Other)
  Sender: FDA-Public Use
  Company Number: US-ASTELLAS-2016US044742

PATIENT
  Age: 76 Year
  Sex: Male

DRUGS (1)
  1. XTANDI [Suspect]
     Active Substance: ENZALUTAMIDE
     Indication: HORMONE-REFRACTORY PROSTATE CANCER
     Route: 065
     Dates: end: 201606

REACTIONS (4)
  - Gastrointestinal disorder [Unknown]
  - Death [Fatal]
  - Malaise [Unknown]
  - Rectourethral fistula [Unknown]

NARRATIVE: CASE EVENT DATE: 20161213
